FAERS Safety Report 8831744 (Version 3)
Quarter: 2013Q3

REPORT INFORMATION
  Report Type: Report from Study
  Country: JP (occurrence: JP)
  Receive Date: 20121009
  Receipt Date: 20130711
  Transmission Date: 20140515
  Serious: Yes (Hospitalization)
  Sender: FDA-Public Use
  Company Number: JP-VERTEX PHARMACEUTICAL INC.-2012-022320

PATIENT
  Age: 51 Year
  Sex: Female

DRUGS (10)
  1. VX-950 (TELAPREVIR) [Suspect]
     Indication: CHRONIC HEPATITIS C
     Dosage: 1500 MG, QD
     Route: 048
     Dates: start: 20120620, end: 20120805
  2. RIBAVIRIN [Suspect]
     Indication: CHRONIC HEPATITIS C
     Dosage: 600 MG, QD
     Route: 048
     Dates: start: 20120620, end: 20120731
  3. RIBAVIRIN [Suspect]
     Dosage: 200 MG, QD
     Route: 048
     Dates: start: 20120801, end: 20120805
  4. PEGINTERFERON ALFA-2B [Suspect]
     Indication: CHRONIC HEPATITIS C
     Dosage: 1.5 ?G/KG, QW
     Route: 058
     Dates: start: 20120620, end: 20120801
  5. TAKEPRON [Concomitant]
     Dosage: 15 MG, QD
     Route: 048
  6. REBAMIPIDE [Concomitant]
     Dosage: 100 MG, QD/PRN
     Route: 048
     Dates: start: 20120621, end: 20120625
  7. ALLEGRA OD [Concomitant]
     Dosage: 120 MG, QD
     Route: 048
     Dates: start: 20120626, end: 20120904
  8. LOXOPROFEN [Concomitant]
     Dosage: 60 MG/QD, PRN
     Route: 048
     Dates: start: 20120807, end: 20120814
  9. REBAMIPIDE OD [Concomitant]
     Dosage: 100 MG, QD
     Route: 048
     Dates: start: 20120807, end: 20120814
  10. MAGMITT [Concomitant]
     Dosage: 990 MG, QD
     Route: 048
     Dates: start: 20120822, end: 20120904

REACTIONS (3)
  - Dizziness [Recovered/Resolved]
  - Vomiting [Recovered/Resolved]
  - Nausea [Recovered/Resolved]
